FAERS Safety Report 8822631 (Version 2)
Quarter: 2012Q4

REPORT INFORMATION
  Report Type: 
  Country: US (occurrence: US)
  Receive Date: 20121003
  Receipt Date: 20121109
  Transmission Date: 20130627
  Serious: Yes (Other)
  Sender: FDA-Public Use
  Company Number: US-PFIZER INC-2012239671

PATIENT
  Age: 85 Year
  Sex: Female
  Weight: 45.35 kg

DRUGS (6)
  1. TOVIAZ [Suspect]
     Indication: MICTURITION DISORDER
     Dosage: 8 mg, 1x/day
     Route: 048
     Dates: start: 20111119
  2. TOVIAZ [Suspect]
     Dosage: UNK
     Route: 048
  3. TOVIAZ [Suspect]
     Dosage: 4 mg, 1x/day
     Route: 048
     Dates: end: 201209
  4. TOVIAZ [Suspect]
     Dosage: splitted 8 mg tablet into half
  5. ARICEPT [Concomitant]
     Indication: NERVOUS SYSTEM DISORDER
     Dosage: UNK
  6. BETTERWOMAN [Concomitant]
     Dosage: UNK

REACTIONS (5)
  - Osteoporosis [Unknown]
  - Speech disorder [Not Recovered/Not Resolved]
  - Body height decreased [Unknown]
  - Dry mouth [Not Recovered/Not Resolved]
  - Wrong technique in drug usage process [Unknown]
